FAERS Safety Report 22045480 (Version 1)
Quarter: 2023Q1

REPORT INFORMATION
  Report Type: Spontaneous
  Country: US (occurrence: None)
  Receive Date: 20230227
  Receipt Date: 20230227
  Transmission Date: 20230417
  Serious: No
  Sender: FDA-Public Use
  Company Number: None

PATIENT
  Sex: Male

DRUGS (1)
  1. OPSUMIT [Suspect]
     Active Substance: MACITENTAN
     Indication: Pulmonary arterial hypertension
     Dosage: FREQUENCY : DAILY;?
     Route: 048
     Dates: start: 20230222

REACTIONS (7)
  - Dizziness [None]
  - Fatigue [None]
  - Influenza like illness [None]
  - Diarrhoea [None]
  - Nausea [None]
  - Frustration tolerance decreased [None]
  - Drug ineffective [None]
